FAERS Safety Report 24121358 (Version 1)
Quarter: 2024Q3

REPORT INFORMATION
  Report Type: Spontaneous
  Country: FR (occurrence: FR)
  Receive Date: 20240722
  Receipt Date: 20240722
  Transmission Date: 20241017
  Serious: Yes (Other)
  Sender: AMGEN
  Company Number: None

PATIENT
  Age: 34 Year
  Sex: Male

DRUGS (1)
  1. XGEVA [Suspect]
     Active Substance: DENOSUMAB
     Indication: Metastases to bone
     Dosage: 1 DOSAGE FORM, Q4WK
     Route: 058
     Dates: start: 202307

REACTIONS (1)
  - Toothache [Not Recovered/Not Resolved]

NARRATIVE: CASE EVENT DATE: 20240101
